FAERS Safety Report 7321763-1 (Version None)
Quarter: 2011Q1

REPORT INFORMATION
  Report Type: 
  Country: None (occurrence: None)
  Receive Date: 20110228
  Receipt Date: 20110216
  Transmission Date: 20110831
  Serious: Yes (Life-Threatening)
  Sender: FDA-Public Use
  Company Number: FR-PFIZER INC-2008025416

PATIENT
  Age: 54 Year
  Sex: Male

DRUGS (3)
  1. CORDARONE [Interacting]
     Route: 048
     Dates: end: 20071217
  2. VFEND [Interacting]
     Dates: start: 20071203, end: 20071210
  3. VFEND [Suspect]
     Route: 042
     Dates: start: 20071105, end: 20071115

REACTIONS (3)
  - ELECTROCARDIOGRAM QT PROLONGED [None]
  - DRUG INTERACTION [None]
  - TORSADE DE POINTES [None]
